FAERS Safety Report 7994695-3 (Version None)
Quarter: 2011Q4

REPORT INFORMATION
  Report Type: 
  Country: None (occurrence: None)
  Receive Date: 20111220
  Receipt Date: 20111219
  Transmission Date: 20120403
  Serious: Yes (Hospitalization)
  Sender: FDA-Public Use
  Company Number: IT-SANOFI-AVENTIS-2011SA079860

PATIENT
  Age: 85 Year
  Sex: Female

DRUGS (5)
  1. LASIX [Suspect]
     Route: 048
     Dates: start: 20080101, end: 20110928
  2. DIGOXIN [Concomitant]
     Route: 048
  3. COUMADIN [Concomitant]
     Route: 048
  4. AMLODIPINE [Concomitant]
     Route: 048
  5. ENALAPRIL MALEATE [Suspect]
     Route: 048
     Dates: start: 20080101, end: 20110928

REACTIONS (2)
  - HYPERKALAEMIA [None]
  - HYPONATRAEMIA [None]
